FAERS Safety Report 20102951 (Version 1)
Quarter: 2021Q4

REPORT INFORMATION
  Report Type: Report from Study
  Country: US (occurrence: US)
  Receive Date: 20211123
  Receipt Date: 20211123
  Transmission Date: 20220303
  Serious: Yes (Other)
  Sender: FDA-Public Use
  Company Number: US-BAYER-2021A226556

PATIENT
  Age: 63 Year
  Sex: Female

DRUGS (1)
  1. STIVARGA [Suspect]
     Active Substance: REGORAFENIB
     Indication: Colon cancer
     Dosage: 80 MG, QD DAILY FOR 21 DAYS ON AND 7 DAYS OFF TO COMPLETE A 28 DAY CYCLE
     Route: 048
     Dates: start: 20210922, end: 20211004

REACTIONS (11)
  - Sensory disturbance [Unknown]
  - Blood test abnormal [Unknown]
  - Laboratory test abnormal [Unknown]
  - Asthenia [Unknown]
  - Hepatic enzyme abnormal [Unknown]
  - Blood sodium decreased [Unknown]
  - Dyspnoea [Unknown]
  - Weight decreased [Unknown]
  - Eating disorder [Unknown]
  - Pain [Unknown]
  - Off label use [None]

NARRATIVE: CASE EVENT DATE: 20210922
